FAERS Safety Report 6104131-X (Version None)
Quarter: 2009Q1

REPORT INFORMATION
  Report Type: 
  Country: None (occurrence: None)
  Receive Date: 20090305
  Receipt Date: 20090223
  Transmission Date: 20090719
  Serious: Yes (Hospitalization, Other)
  Sender: FDA-Public Use
  Company Number: US-ELI_LILLY_AND_COMPANY-US200902000470

PATIENT
  Sex: Male
  Weight: 94.1 kg

DRUGS (12)
  1. HUMALOG [Suspect]
     Dosage: 40 U, UNK
  2. HUMALOG [Suspect]
  3. HUMALOG [Suspect]
  4. LANTUS [Concomitant]
  5. SYMLIN [Concomitant]
  6. TRICOR [Concomitant]
  7. DIOVAN [Concomitant]
  8. LEVOTHYROXINE SODIUM [Concomitant]
  9. ACETYLSALICYLIC ACID [Concomitant]
  10. NORCO [Concomitant]
     Indication: PAIN
     Dosage: UNK, AS NEEDED
  11. OXYCONTIN [Concomitant]
  12. COLACE [Concomitant]
     Indication: CONSTIPATION

REACTIONS (13)
  - BLOOD GLUCOSE INCREASED [None]
  - CERVICAL SPINAL STENOSIS [None]
  - CERVICAL VERTEBRAL FRACTURE [None]
  - DRUG DISPENSING ERROR [None]
  - DYSPHONIA [None]
  - FACIAL BONES FRACTURE [None]
  - FALL [None]
  - INTERVERTEBRAL DISC DEGENERATION [None]
  - LOSS OF CONSCIOUSNESS [None]
  - SPINAL CORD INJURY CERVICAL [None]
  - SPINAL OSTEOARTHRITIS [None]
  - SYRINGOMYELIA [None]
  - VOCAL CORD INFLAMMATION [None]
